FAERS Safety Report 5763258-2 (Version None)
Quarter: 2008Q2

REPORT INFORMATION
  Report Type: 
  Country: None (occurrence: None)
  Receive Date: 20080604
  Receipt Date: 20080604
  Transmission Date: 20081010
  Serious: Yes (Life-Threatening, Hospitalization)
  Sender: FDA-Public Use
  Company Number: None

PATIENT
  Sex: Male

DRUGS (4)
  1. HUMALOG [Suspect]
     Indication: TYPE 1 DIABETES MELLITUS
     Dosage: 70 UNITS DAILY SQ
     Route: 058
  2. TOPROL-XL [Concomitant]
  3. LIPITOR [Concomitant]
  4. RAMIPRIL [Concomitant]

REACTIONS (3)
  - DRUG INEFFECTIVE [None]
  - KETOACIDOSIS [None]
  - MALAISE [None]
